FAERS Safety Report 8809621 (Version 2)
Quarter: 2014Q3

REPORT INFORMATION
  Report Type: Report from Study
  Country: US (occurrence: US)
  Receive Date: 20120926
  Receipt Date: 20140905
  Transmission Date: 20150326
  Serious: Yes (Other)
  Sender: FDA-Public Use
  Company Number: US-ROCHE-1104042

PATIENT
  Sex: Female
  Weight: 69.5 kg

DRUGS (11)
  1. HERCEPTIN [Suspect]
     Active Substance: TRASTUZUMAB
     Indication: METASTATIC NEOPLASM
  2. CARBOPLATIN. [Concomitant]
     Active Substance: CARBOPLATIN
  3. ETHYOL [Concomitant]
     Active Substance: AMIFOSTINE
  4. HERCEPTIN [Suspect]
     Active Substance: TRASTUZUMAB
     Indication: BREAST CANCER FEMALE
     Route: 065
  5. GEMZAR [Concomitant]
     Active Substance: GEMCITABINE HYDROCHLORIDE
  6. CAPECITABINE [Suspect]
     Active Substance: CAPECITABINE
     Indication: BREAST CANCER METASTATIC
     Route: 065
  7. TAXOL [Concomitant]
     Active Substance: PACLITAXEL
  8. NAVELBINE [Concomitant]
     Active Substance: VINORELBINE TARTRATE
  9. NEULASTA [Concomitant]
     Active Substance: PEGFILGRASTIM
     Route: 065
  10. AVASTIN [Suspect]
     Active Substance: BEVACIZUMAB
     Indication: BREAST CANCER FEMALE
     Route: 042
  11. AVASTIN [Suspect]
     Active Substance: BEVACIZUMAB
     Indication: METASTATIC NEOPLASM

REACTIONS (3)
  - Metastases to chest wall [Unknown]
  - Neoplasm recurrence [Unknown]
  - Dyspnoea [Unknown]
